FAERS Safety Report 21140663 (Version 1)
Quarter: 2022Q3

REPORT INFORMATION
  Report Type: Spontaneous
  Country: US (occurrence: US)
  Receive Date: 20220728
  Receipt Date: 20220728
  Transmission Date: 20221026
  Serious: Yes (Other)
  Sender: FDA-Public Use
  Company Number: US-BEH-2022147861

PATIENT
  Sex: Female

DRUGS (5)
  1. HIZENTRA [Suspect]
     Active Substance: HUMAN IMMUNOGLOBULIN G
     Indication: Immunodeficiency common variable
     Dosage: 10 GRAM
     Route: 058
     Dates: start: 20211215
  2. HIZENTRA [Suspect]
     Active Substance: HUMAN IMMUNOGLOBULIN G
     Dosage: 13 GRAM, QW
     Route: 058
     Dates: start: 20211215
  3. EPINEPHRINE [Concomitant]
     Active Substance: EPINEPHRINE
  4. HYDROCHLOROTHIAZIDE [Concomitant]
     Active Substance: HYDROCHLOROTHIAZIDE
  5. LORATADINE [Concomitant]
     Active Substance: LORATADINE

REACTIONS (3)
  - COVID-19 [Recovered/Resolved]
  - Product dose omission issue [Recovered/Resolved]
  - Sinusitis [Recovered/Resolved]
